FAERS Safety Report 9431884 (Version 1)
Quarter: 2013Q3

REPORT INFORMATION
  Report Type: Spontaneous
  Country: US (occurrence: US)
  Receive Date: 20130731
  Receipt Date: 20130731
  Transmission Date: 20140515
  Serious: Yes (Other)
  Sender: FDA-Public Use
  Company Number: US-ASTRAZENECA-2013SE56564

PATIENT
  Sex: Female

DRUGS (1)
  1. SEROQUEL [Suspect]
     Dosage: NR NR
     Route: 048

REACTIONS (3)
  - Blood cholesterol increased [Unknown]
  - Post-traumatic stress disorder [Unknown]
  - Major depression [Unknown]
